FAERS Safety Report 9686758 (Version 1)
Quarter: 2013Q4

REPORT INFORMATION
  Report Type: Spontaneous
  Country: JP (occurrence: JP)
  Receive Date: 20131113
  Receipt Date: 20131113
  Transmission Date: 20140711
  Serious: Yes (Other)
  Sender: FDA-Public Use
  Company Number: JP-BRISTOL-MYERS SQUIBB COMPANY-19807817

PATIENT
  Age: 61 Year
  Sex: Female

DRUGS (3)
  1. METGLUCO [Suspect]
     Indication: DIABETES MELLITUS
     Route: 048
  2. CRESTOR [Suspect]
     Route: 048
  3. FAMOTIDINE [Concomitant]

REACTIONS (2)
  - Rhabdomyolysis [Unknown]
  - Myalgia [Recovered/Resolved]
